FAERS Safety Report 12104497 (Version 3)
Quarter: 2016Q3

REPORT INFORMATION
  Report Type: Spontaneous
  Country: US (occurrence: US)
  Receive Date: 20160223
  Receipt Date: 20160801
  Transmission Date: 20161109
  Serious: Yes (Other)
  Sender: FDA-Public Use
  Company Number: US-PFIZER INC-2016092252

PATIENT
  Age: 73 Year
  Sex: Female

DRUGS (100)
  1. ACTOS [Concomitant]
     Active Substance: PIOGLITAZONE HYDROCHLORIDE
     Dosage: 30 MG, UNK
     Dates: start: 20150427
  2. GLIPIZIDE. [Concomitant]
     Active Substance: GLIPIZIDE
     Dosage: 10 MG, DAILY
     Dates: start: 20141008
  3. GLIPIZIDE. [Concomitant]
     Active Substance: GLIPIZIDE
     Dosage: 10 MG, DAILY (BID A YEAR AGO)
     Dates: start: 20160427
  4. JANUVIA [Concomitant]
     Active Substance: SITAGLIPTIN PHOSPHATE
     Dosage: UNK, 2X/DAY
     Dates: start: 20151008
  5. SYNTHROID [Concomitant]
     Active Substance: LEVOTHYROXINE SODIUM
     Dosage: 175 UG, DAILY (HAS BEEN ON FOR 20YRS)
     Dates: start: 20160427
  6. HYDROCODONE/ACETAMINOPHEN [Concomitant]
     Active Substance: ACETAMINOPHEN\HYDROCODONE
     Dosage: 5 MG, 325 MG 1X/DAY AS NEEDED
     Dates: start: 20150427
  7. LOSARTIN [Concomitant]
     Active Substance: LOSARTAN
     Dosage: 25 MG, 2X/DAY
     Dates: start: 20150608
  8. VITAMIN D [Concomitant]
     Active Substance: CHOLECALCIFEROL
     Dosage: 1000 MG, DAILY
     Dates: start: 20150427
  9. FISH OIL [Concomitant]
     Active Substance: FISH OIL
     Dosage: 1200 MG, 2X/DAY
  10. COCONUT OIL [Concomitant]
     Active Substance: COCONUT OIL
     Dosage: 4000 MG, 2X/DAY
     Dates: start: 20140606
  11. COCONUT OIL [Concomitant]
     Active Substance: COCONUT OIL
     Dosage: 4000 MG, 2X/DAY
     Dates: start: 20150427
  12. MVI [Concomitant]
     Active Substance: VITAMINS
     Dosage: UNK, DAILY
     Dates: start: 20140606
  13. LANTUS [Concomitant]
     Active Substance: INSULIN GLARGINE
     Dosage: 18 IU, DAILY
     Dates: start: 20160427
  14. EXEMESTANE. [Concomitant]
     Active Substance: EXEMESTANE
     Dosage: 25 MG, DAILY
     Dates: start: 20151008
  15. ACTOS [Concomitant]
     Active Substance: PIOGLITAZONE HYDROCHLORIDE
     Dosage: 15 MG, DAILY
     Dates: start: 20140606
  16. IBUPROFEN. [Concomitant]
     Active Substance: IBUPROFEN
     Dosage: 800 MG, 2X/DAY
     Dates: start: 20140606
  17. JANUVIA [Concomitant]
     Active Substance: SITAGLIPTIN PHOSPHATE
     Dosage: UNK, 2X/DAY
     Dates: start: 20141008
  18. ZANTAC [Concomitant]
     Active Substance: RANITIDINE HYDROCHLORIDE
     Dosage: 150 MG, 2X/DAY
     Dates: start: 20151008
  19. HYDROCODONE/ACETAMINOPHEN [Concomitant]
     Active Substance: ACETAMINOPHEN\HYDROCODONE
     Dosage: 5 MG, 325 MG 1X/DAY AS NEEDED
     Dates: start: 20141008
  20. HYDROCODONE/ACETAMINOPHEN [Concomitant]
     Active Substance: ACETAMINOPHEN\HYDROCODONE
     Dosage: 5 MG, 325 MG 1X/DAY AS NEEDED
     Dates: start: 20150608
  21. LOSARTIN [Concomitant]
     Active Substance: LOSARTAN
     Dosage: 12.5 MG, 1X/DAY
  22. VITAMIN D [Concomitant]
     Active Substance: CHOLECALCIFEROL
     Dosage: 1000 MG, DAILY
     Dates: start: 20140606
  23. CALCIUM 500+D [Concomitant]
     Active Substance: CALCIUM\VITAMIN D
     Dosage: 500 MG, 2X/DAY
     Dates: start: 20141008
  24. OSTEO BI-FLEX [Concomitant]
     Active Substance: CHONDROITIN SULFATE A\GLUCOSAMINE
     Dosage: 1500 MG, 2X/DAY
     Dates: start: 20150427
  25. OSTEO BI-FLEX [Concomitant]
     Active Substance: CHONDROITIN SULFATE A\GLUCOSAMINE
     Dosage: 1500 MG, 2X/DAY
     Dates: start: 20160427
  26. COCONUT OIL [Concomitant]
     Active Substance: COCONUT OIL
     Dosage: 4000 MG, 2X/DAY
  27. COCONUT OIL [Concomitant]
     Active Substance: COCONUT OIL
     Dosage: 4000 MG, UNK
     Dates: start: 20160427
  28. METFORMIN [Concomitant]
     Active Substance: METFORMIN HYDROCHLORIDE
     Dosage: 500 MG, 2X/DAY
     Dates: start: 20140606
  29. AROMASIN [Suspect]
     Active Substance: EXEMESTANE
     Indication: BREAST CANCER
     Dosage: 25 MG, 1X/DAY
     Dates: start: 201508
  30. ACTOS [Concomitant]
     Active Substance: PIOGLITAZONE HYDROCHLORIDE
     Dosage: 15 MG, DAILY
     Dates: start: 20141008
  31. SYNTHROID [Concomitant]
     Active Substance: LEVOTHYROXINE SODIUM
     Dosage: 150 UG, 1X/DAY
  32. SYNTHROID [Concomitant]
     Active Substance: LEVOTHYROXINE SODIUM
     Dosage: 175 UG, DAILY
     Dates: start: 20151008
  33. HYDROCODONE/ACETAMINOPHEN [Concomitant]
     Active Substance: ACETAMINOPHEN\HYDROCODONE
     Dosage: 5 MG, 325 MG 1X/DAY AS NEEDED
     Dates: start: 20151008
  34. IBUPROFEN. [Concomitant]
     Active Substance: IBUPROFEN
     Dosage: 800 MG, 2X/DAY
     Dates: start: 20150427
  35. IBUPROFEN. [Concomitant]
     Active Substance: IBUPROFEN
     Dosage: 800 MG, 2X/DAY
     Dates: start: 20160427
  36. JANUVIA [Concomitant]
     Active Substance: SITAGLIPTIN PHOSPHATE
     Dosage: UNK, 2X/DAY
     Dates: start: 20140606
  37. ZANTAC [Concomitant]
     Active Substance: RANITIDINE HYDROCHLORIDE
     Dosage: 150 MG, 2X/DAY
     Dates: start: 20141008
  38. LOSARTIN [Concomitant]
     Active Substance: LOSARTAN
     Dosage: 25 MG, 2X/DAY
     Dates: start: 20150427
  39. VITAMIN D [Concomitant]
     Active Substance: CHOLECALCIFEROL
     Dosage: 1000 MG, 1X/DAY
  40. VITAMIN D [Concomitant]
     Active Substance: CHOLECALCIFEROL
     Dosage: 1000 MG, DAILY
     Dates: start: 20151008
  41. VITAMIN D [Concomitant]
     Active Substance: CHOLECALCIFEROL
     Dosage: 1000 MG, DAILY
     Dates: start: 20160427
  42. CALCIUM 500+D [Concomitant]
     Active Substance: CALCIUM\VITAMIN D
     Dosage: 500 MG, 2X/DAY
     Dates: start: 20150608
  43. COCONUT OIL [Concomitant]
     Active Substance: COCONUT OIL
     Dosage: 4000 MG, 2X/DAY
     Dates: start: 20141008
  44. METFORMIN [Concomitant]
     Active Substance: METFORMIN HYDROCHLORIDE
     Dosage: 500 MG, 2X/DAY
     Dates: start: 20141008
  45. MVI [Concomitant]
     Active Substance: VITAMINS
     Dosage: UNK, DAILY
     Dates: start: 20141008
  46. ANASTROZOLE. [Concomitant]
     Active Substance: ANASTROZOLE
     Dosage: 1 MG, DAILY
     Dates: start: 20151008, end: 2015
  47. AROMASIN [Suspect]
     Active Substance: EXEMESTANE
     Dosage: 25 MG, UNK
     Dates: start: 20151008
  48. AROMASIN [Suspect]
     Active Substance: EXEMESTANE
     Dosage: 25 MG, UNK
     Dates: start: 20160427
  49. ACTOS [Concomitant]
     Active Substance: PIOGLITAZONE HYDROCHLORIDE
     Dosage: 15 MG, DAILY
     Dates: start: 20150608
  50. ACTOS [Concomitant]
     Active Substance: PIOGLITAZONE HYDROCHLORIDE
     Dosage: 15 MG, DAILY
     Dates: start: 20160427
  51. IBUPROFEN. [Concomitant]
     Active Substance: IBUPROFEN
     Dosage: 800 MG, 2X/DAY
     Dates: start: 20150608
  52. GLIPIZIDE. [Concomitant]
     Active Substance: GLIPIZIDE
     Dosage: 10 MG, 2X/DAY
  53. GLIPIZIDE. [Concomitant]
     Active Substance: GLIPIZIDE
     Dosage: 10 MG, DAILY
     Dates: start: 20150427
  54. JANUVIA [Concomitant]
     Active Substance: SITAGLIPTIN PHOSPHATE
     Dosage: 100 MG, 1X/DAY
  55. ZANTAC [Concomitant]
     Active Substance: RANITIDINE HYDROCHLORIDE
     Dosage: 150 MG, 2X/DAY
     Dates: start: 20150427
  56. HYDROCODONE/ACETAMINOPHEN [Concomitant]
     Active Substance: ACETAMINOPHEN\HYDROCODONE
     Indication: PAIN
     Dosage: 5 MG, 325 MG 1X/DAY AS NEEDED
  57. HYDROCODONE/ACETAMINOPHEN [Concomitant]
     Active Substance: ACETAMINOPHEN\HYDROCODONE
     Dosage: 5 MG, 325 MG 1X/DAY AS NEEDED
     Dates: start: 20140606
  58. VITAMIN D [Concomitant]
     Active Substance: CHOLECALCIFEROL
     Dosage: 1000 MG, DAILY
     Dates: start: 20150608
  59. CALCIUM 500+D [Concomitant]
     Active Substance: CALCIUM\VITAMIN D
     Dosage: 500 MG, 2X/DAY
     Dates: start: 20160427
  60. OSTEO BI-FLEX [Concomitant]
     Active Substance: CHONDROITIN SULFATE A\GLUCOSAMINE
     Dosage: 1500 MG, 2X/DAY
  61. COCONUT OIL [Concomitant]
     Active Substance: COCONUT OIL
     Dosage: 4000 MG, UNK
     Dates: start: 20150608
  62. MVI [Concomitant]
     Active Substance: VITAMINS
     Dosage: UNK, DAILY
     Dates: start: 20150427
  63. GLIPIZIDE. [Concomitant]
     Active Substance: GLIPIZIDE
     Dosage: 10 MG, DAILY
     Dates: start: 20150608
  64. ZANTAC [Concomitant]
     Active Substance: RANITIDINE HYDROCHLORIDE
     Dosage: 150 MG, 2X/DAY
     Dates: start: 20150608
  65. LOSARTIN [Concomitant]
     Active Substance: LOSARTAN
     Dosage: 25 MG, 2X/DAY
     Dates: start: 20140606
  66. LOSARTIN [Concomitant]
     Active Substance: LOSARTAN
     Dosage: 25 MG, 2X/DAY
     Dates: start: 20151008
  67. VITAMIN D [Concomitant]
     Active Substance: CHOLECALCIFEROL
     Dosage: 1000 MG, DAILY
     Dates: start: 20141008
  68. CALCIUM 500+D [Concomitant]
     Active Substance: CALCIUM\VITAMIN D
     Dosage: 500 MG, 2X/DAY
     Dates: start: 20150427
  69. OSTEO BI-FLEX [Concomitant]
     Active Substance: CHONDROITIN SULFATE A\GLUCOSAMINE
     Dosage: 1500 MG, 2X/DAY
     Dates: start: 20140606
  70. OSTEO BI-FLEX [Concomitant]
     Active Substance: CHONDROITIN SULFATE A\GLUCOSAMINE
     Dosage: 1500 MG, 2X/DAY
     Dates: start: 20150608
  71. EXEMESTANE. [Concomitant]
     Active Substance: EXEMESTANE
     Dosage: 25 MG, DAILY
     Dates: start: 20160427
  72. AROMASIN [Suspect]
     Active Substance: EXEMESTANE
     Dosage: 90 MG, DAILY
     Route: 048
  73. ACTOS [Concomitant]
     Active Substance: PIOGLITAZONE HYDROCHLORIDE
     Dosage: 45 MG, 1X/DAY
  74. ACTOS [Concomitant]
     Active Substance: PIOGLITAZONE HYDROCHLORIDE
     Dosage: 45 MG, UNK
     Dates: start: 20151008
  75. IBUPROFEN. [Concomitant]
     Active Substance: IBUPROFEN
     Dosage: 800 MG, 2X/DAY
     Dates: start: 20141008
  76. IBUPROFEN. [Concomitant]
     Active Substance: IBUPROFEN
     Dosage: 800 MG, 2X/DAY
     Dates: start: 20151008
  77. GLIPIZIDE. [Concomitant]
     Active Substance: GLIPIZIDE
     Dosage: 10 MG, DAILY
     Dates: start: 20140606
  78. GLIPIZIDE. [Concomitant]
     Active Substance: GLIPIZIDE
     Dosage: 10 MG, DAILY
     Dates: start: 20151008
  79. JANUVIA [Concomitant]
     Active Substance: SITAGLIPTIN PHOSPHATE
     Dosage: UNK, 2X/DAY
     Dates: start: 20150608
  80. JANUVIA [Concomitant]
     Active Substance: SITAGLIPTIN PHOSPHATE
     Dosage: UNK, 2X/DAY (SINCE LAST FALL)
     Dates: start: 20160427
  81. ZANTAC [Concomitant]
     Active Substance: RANITIDINE HYDROCHLORIDE
     Dosage: 150 MG, 2X/DAY
  82. ZANTAC [Concomitant]
     Active Substance: RANITIDINE HYDROCHLORIDE
     Dosage: 150 MG, 2X/DAY
     Dates: start: 20140606
  83. ZANTAC [Concomitant]
     Active Substance: RANITIDINE HYDROCHLORIDE
     Dosage: 150 MG, 2X/DAY
     Dates: start: 20160427
  84. HYDROCODONE/ACETAMINOPHEN [Concomitant]
     Active Substance: ACETAMINOPHEN\HYDROCODONE
     Dosage: 5 MG, 325 MG 1X/DAY AS NEEDED
     Dates: start: 20160427
  85. LOSARTIN [Concomitant]
     Active Substance: LOSARTAN
     Dosage: 25 MG, 2X/DAY
     Dates: start: 20141008
  86. LOSARTIN [Concomitant]
     Active Substance: LOSARTAN
     Dosage: 12.5 MG, DAILY
     Dates: start: 20160427
  87. CALCIUM 500+D [Concomitant]
     Active Substance: CALCIUM\VITAMIN D
     Dosage: UNK, 2X/DAY
  88. OSTEO BI-FLEX [Concomitant]
     Active Substance: CHONDROITIN SULFATE A\GLUCOSAMINE
     Dosage: 1500 MG, 2X/DAY
     Dates: start: 20151008
  89. CINNAMON. [Concomitant]
     Active Substance: CINNAMON
     Dosage: 1000 MG, 2X/DAY
     Dates: start: 201512
  90. ANASTROZOLE. [Concomitant]
     Active Substance: ANASTROZOLE
     Dosage: 1 MG, DAILY
     Dates: start: 20150427
  91. LANTUS [Concomitant]
     Active Substance: INSULIN GLARGINE
     Dosage: 18 IU, DAILY
     Dates: start: 20151008
  92. JANUVIA [Concomitant]
     Active Substance: SITAGLIPTIN PHOSPHATE
     Dosage: UNK, 2X/DAY
     Dates: start: 20150427
  93. CALCIUM 500+D [Concomitant]
     Active Substance: CALCIUM\VITAMIN D
     Dosage: 500 MG, 2X/DAY
     Dates: start: 20140606
  94. CALCIUM 500+D [Concomitant]
     Active Substance: CALCIUM\VITAMIN D
     Dosage: 500 MG, 2X/DAY
     Dates: start: 20151008
  95. OSTEO BI-FLEX [Concomitant]
     Active Substance: CHONDROITIN SULFATE A\GLUCOSAMINE
     Dosage: 1500 MG, 2X/DAY
     Dates: start: 20141008
  96. COCONUT OIL [Concomitant]
     Active Substance: COCONUT OIL
     Dosage: 4000 MG, 2X/DAY
     Dates: start: 20151008
  97. MVI [Concomitant]
     Active Substance: VITAMINS
     Dosage: UNK,DAILY
     Dates: start: 20150608
  98. MVI [Concomitant]
     Active Substance: VITAMINS
     Dosage: UNK, DAILY
     Dates: start: 20151008
  99. MVI [Concomitant]
     Active Substance: VITAMINS
     Dosage: UNK, DAILY
     Dates: start: 20160427
  100. ANASTROZOLE. [Concomitant]
     Active Substance: ANASTROZOLE
     Dosage: 1 MG, DAILY
     Dates: start: 20150608

REACTIONS (2)
  - Condition aggravated [Not Recovered/Not Resolved]
  - Blood glucose increased [Not Recovered/Not Resolved]

NARRATIVE: CASE EVENT DATE: 201508
